FAERS Safety Report 12109729 (Version 1)
Quarter: 2016Q1

REPORT INFORMATION
  Report Type: Spontaneous
  Country: VN (occurrence: VN)
  Receive Date: 20160224
  Receipt Date: 20160224
  Transmission Date: 20160526
  Serious: Yes (Death)
  Sender: FDA-Public Use
  Company Number: VN-009507513-1602VNM010041

PATIENT
  Sex: Female

DRUGS (1)
  1. FOSAMAX PLUS D [Suspect]
     Active Substance: ALENDRONATE SODIUM\CHOLECALCIFEROL
     Dosage: 1 TABLET ONCE A WEEK, (2800 QW (UNITS NOT SPECIFIED))
     Route: 048
     Dates: start: 20150101

REACTIONS (1)
  - Hypertension [Fatal]
